FAERS Safety Report 23322448 (Version 1)
Quarter: 2023Q4

REPORT INFORMATION
  Report Type: Spontaneous
  Country: US (occurrence: None)
  Receive Date: 20231220
  Receipt Date: 20231220
  Transmission Date: 20240109
  Serious: No
  Sender: FDA-Public Use
  Company Number: None

PATIENT

DRUGS (2)
  1. AMIODARONE [Suspect]
     Active Substance: AMIODARONE
  2. DOFETILIDE [Suspect]
     Active Substance: DOFETILIDE

REACTIONS (3)
  - Incorrect dose administered [None]
  - Confusional state [None]
  - Product availability issue [None]
